FAERS Safety Report 6080723-1 (Version None)
Quarter: 2009Q1

REPORT INFORMATION
  Report Type: 
  Country: None (occurrence: None)
  Receive Date: 20090217
  Receipt Date: 20090210
  Transmission Date: 20090719
  Serious: Yes (Hospitalization, Other)
  Sender: FDA-Public Use
  Company Number: SE-JNJFOC-20090202590

PATIENT
  Age: 51 Year

DRUGS (3)
  1. RISPERDAL [Suspect]
     Route: 048
  2. RISPERDAL [Suspect]
     Indication: SCHIZOPHRENIA
     Dosage: FOR MANY YEARS
     Route: 048
  3. SERTRALINE [Concomitant]
     Route: 048

REACTIONS (8)
  - ATRIAL FIBRILLATION [None]
  - BALANCE DISORDER [None]
  - BODY TEMPERATURE DECREASED [None]
  - HEART RATE DECREASED [None]
  - HOSPITALISATION [None]
  - HYPOTENSION [None]
  - TRANSAMINASES INCREASED [None]
  - TREMOR [None]
